FAERS Safety Report 8392129-0 (Version None)
Quarter: 2012Q1

REPORT INFORMATION
  Report Type: 
  Country: None (occurrence: None)
  Receive Date: 20120323
  Receipt Date: 20110225
  Transmission Date: 20120608
  Serious: Yes (Other)
  Sender: FDA-Public Use
  Company Number: 163-21880-11030115

PATIENT
  Age: 77 Year
  Sex: Male

DRUGS (3)
  1. REVLIMID [Suspect]
     Indication: PSEUDOLYMPHOMA
     Dosage: 10 MG, 1 IN 1 D, PO ; 15 MG, 1 IN 1 D, PO ; 20 MG, DAILY, PO
     Route: 048
     Dates: start: 20101223
  2. REVLIMID [Suspect]
     Indication: PSEUDOLYMPHOMA
     Dosage: 10 MG, 1 IN 1 D, PO ; 15 MG, 1 IN 1 D, PO ; 20 MG, DAILY, PO
     Route: 048
     Dates: start: 20110101
  3. REVLIMID [Suspect]
     Indication: PSEUDOLYMPHOMA
     Dosage: 10 MG, 1 IN 1 D, PO ; 15 MG, 1 IN 1 D, PO ; 20 MG, DAILY, PO
     Route: 048
     Dates: start: 20110201

REACTIONS (1)
  - HERPES ZOSTER [None]
